FAERS Safety Report 8557964-4 (Version None)
Quarter: 2012Q3

REPORT INFORMATION
  Report Type: 
  Country: None (occurrence: None)
  Receive Date: 20120801
  Receipt Date: 20120724
  Transmission Date: 20120928
  Serious: Yes (Hospitalization, Other)
  Sender: FDA-Public Use
  Company Number: CO-ELI_LILLY_AND_COMPANY-CO201207005340

PATIENT
  Age: 63 Year
  Sex: Male

DRUGS (6)
  1. CALCITRIOL [Concomitant]
     Dosage: UNK
  2. FORTEO [Suspect]
     Indication: OSTEOPOROSIS
     Dosage: 20 UG, QD
     Dates: start: 20120501
  3. OMEPRAZOLE [Concomitant]
  4. CHLOROQUINE PHOSPHATE [Concomitant]
  5. PREDNISOLONE [Concomitant]
  6. TRAMADOL HYDROCHLORIDE [Concomitant]

REACTIONS (2)
  - MYOSITIS [None]
  - SPINAL OSTEOARTHRITIS [None]
